FAERS Safety Report 22214703 (Version 1)
Quarter: 2023Q2

REPORT INFORMATION
  Report Type: Spontaneous
  Country: US (occurrence: US)
  Receive Date: 20230415
  Receipt Date: 20230415
  Transmission Date: 20230721
  Serious: No
  Sender: FDA-Public Use
  Company Number: US-Ipsen Biopharmaceuticals, Inc.-2023-08402

PATIENT
  Age: 72 Year
  Sex: Female
  Weight: 37.228 kg

DRUGS (1)
  1. SOMATULINE DEPOT [Suspect]
     Active Substance: LANREOTIDE ACETATE
     Indication: Neuroendocrine tumour
     Dosage: 120 MG EVERY 4 WEEKS
     Route: 058
     Dates: start: 202212, end: 20230125

REACTIONS (7)
  - Gastrointestinal disorder [Not Recovered/Not Resolved]
  - Weight decreased [Not Recovered/Not Resolved]
  - Malabsorption [Not Recovered/Not Resolved]
  - Flatulence [Not Recovered/Not Resolved]
  - Abdominal distension [Not Recovered/Not Resolved]
  - Injection site oedema [Not Recovered/Not Resolved]
  - Diarrhoea [Recovering/Resolving]
